FAERS Safety Report 7241784 (Version 2)
Quarter: 2014Q1

REPORT INFORMATION
  Report Type: Spontaneous
  Country: US (occurrence: None)
  Receive Date: 20091228
  Receipt Date: 20140225
  Transmission Date: 20141002
  Serious: Yes (Hospitalization, Other)
  Sender: FDA-Public Use
  Company Number: 2009S1008974

PATIENT
  Age: 65 Year
  Sex: Female

DRUGS (11)
  1. FLEET PHOSPHO-SODA ORAL SALINE LAXATIVE, GINGER-LEMON FLAVOR (ORAL SOLUTION) [Suspect]
     Indication: COLONOSCOPY
     Dosage: 90 ML, 2 IN 24 HOURS, ORAL
     Route: 048
     Dates: start: 20071211, end: 20071211
  2. DULCOLAX (BISACODYL) (1 DOSAGE FORMS, ENTERIC-COATED TABLET) [Suspect]
     Indication: COLONOSCOPY
     Dosage: TWO AT 8:00 A.M. AND TWO AT 11:A.M., ORAL
     Route: 048
     Dates: start: 20071211, end: 20071211
  3. ZESTRIL (LISINOPRIL) [Concomitant]
  4. NITROGLYCERIN (GLYCERYL TRINITRATE) SPRAY [Concomitant]
  5. ASPIRIN (ACETYLSALICYLIC ACID) [Concomitant]
  6. MICRO-K (POTASSIUM CHLORIDE) [Concomitant]
  7. PRILOSEC (OMEPRAZOLE) [Concomitant]
  8. ATARAX (HYDROXYZINE) [Concomitant]
  9. ECOTRIN (ACETYLSALICYLIC ACID) [Concomitant]
  10. NORVASC (AMLODIPINE BESILATE0 [Concomitant]
  11. LASIX (FUROSEMIDE) [Concomitant]

REACTIONS (10)
  - Renal failure chronic [None]
  - Nephrocalcinosis [None]
  - Nephropathy [None]
  - Acute phosphate nephropathy [None]
  - Headache [None]
  - Abdominal discomfort [None]
  - Pyrexia [None]
  - Chills [None]
  - Renal failure acute [None]
  - Labelled drug-disease interaction medication error [None]
